FAERS Safety Report 4626643-8 (Version None)
Quarter: 2005Q1

REPORT INFORMATION
  Report Type: 
  Country: None (occurrence: None)
  Receive Date: 20050330
  Receipt Date: 20050317
  Transmission Date: 20050727
  Serious: Yes (Hospitalization)
  Sender: FDA-Public Use
  Company Number: HQWYE340424MAR05

PATIENT
  Age: 63 Year
  Sex: Female
  Weight: 47.22 kg

DRUGS (6)
  1. PREMARIN [Suspect]
     Indication: HYSTERECTOMY
     Dosage: 2 GM, 1/WEEK, VAGINAL
     Route: 067
     Dates: start: 20041201
  2. FOSAMAX [Concomitant]
  3. LISINOPRIL [Concomitant]
  4. BENTYL [Concomitant]
  5. IRON (IRON) [Concomitant]
  6. FOLIC ACID [Concomitant]

REACTIONS (6)
  - ANXIETY [None]
  - CHEST DISCOMFORT [None]
  - COELIAC DISEASE [None]
  - DEHYDRATION [None]
  - DIARRHOEA [None]
  - MUSCLE SPASMS [None]
